FAERS Safety Report 9720670 (Version 1)
Quarter: 2013Q4

REPORT INFORMATION
  Report Type: Report from Study
  Country: US (occurrence: US)
  Receive Date: 20131129
  Receipt Date: 20131129
  Transmission Date: 20140711
  Serious: Yes (Hospitalization)
  Sender: FDA-Public Use
  Company Number: PHHY2013US136934

PATIENT
  Age: 48 Year
  Sex: Male

DRUGS (6)
  1. GILENYA [Suspect]
     Indication: MULTIPLE SCLEROSIS
     Dosage: 0.5 MG, QD
     Route: 048
     Dates: start: 20110607
  2. XANAX [Concomitant]
     Dosage: 0.25 MG, UNK
     Route: 048
  3. METFORMIN [Concomitant]
     Dosage: 500 MG, UNK
     Route: 048
  4. AMANTADINE [Concomitant]
     Dosage: 100 MG, UNK
     Route: 048
  5. LEXAPRO [Concomitant]
     Dosage: 5 MG, UNK
     Route: 048
  6. VITAMIN B12 [Concomitant]
     Dosage: 250 UG, UNK
     Route: 048

REACTIONS (6)
  - Head injury [Recovering/Resolving]
  - Fall [Unknown]
  - Contusion [Unknown]
  - Balance disorder [Recovering/Resolving]
  - Tremor [Recovering/Resolving]
  - Back pain [Unknown]
